FAERS Safety Report 9057982 (Version 1)
Quarter: 2013Q1

REPORT INFORMATION
  Report Type: Spontaneous
  Country: US (occurrence: None)
  Receive Date: 20130117
  Receipt Date: 20130117
  Transmission Date: 20140127
  Serious: Yes (Death, Other)
  Sender: FDA-Public Use
  Company Number: AUR-APL-2013-00239

PATIENT
  Age: 23 Year
  Sex: Female

DRUGS (5)
  1. ALPRAZOLAM (ALPRAZOLAM) [Suspect]
     Indication: PRODUCT USED FOR UNKNOWN INDICATION
  2. BUPROPION [Suspect]
  3. TRAZODONE [Suspect]
  4. COCAINE [Suspect]
  5. METHADONE [Suspect]
     Route: 048

REACTIONS (3)
  - Respiratory arrest [None]
  - Toxicity to various agents [None]
  - Cardiac arrest [None]
